FAERS Safety Report 18012330 (Version 1)
Quarter: 2020Q3

REPORT INFORMATION
  Report Type: Spontaneous
  Country: US (occurrence: US)
  Receive Date: 20200710
  Receipt Date: 20200710
  Transmission Date: 20201103
  Serious: No
  Sender: FDA-Public Use
  Company Number: None

PATIENT
  Age: 46 Year
  Sex: Male
  Weight: 163.75 kg

DRUGS (1)
  1. COSENTYX [Suspect]
     Active Substance: SECUKINUMAB
     Indication: PSORIASIS
     Dosage: OTHER DOSE:300MG (2 PENS); ONCE A WEEK FOR 5 WEEKS AS DIRECTED?
     Route: 058
     Dates: start: 201909

REACTIONS (1)
  - Carpal tunnel decompression [None]
